FAERS Safety Report 17481983 (Version 1)
Quarter: 2020Q1

REPORT INFORMATION
  Report Type: Spontaneous
  Country: US (occurrence: US)
  Receive Date: 20200302
  Receipt Date: 20200302
  Transmission Date: 20200409
  Serious: No
  Sender: FDA-Public Use
  Company Number: US-JNJFOC-20200234579

PATIENT
  Sex: Female
  Weight: 59.02 kg

DRUGS (1)
  1. ZYRTEC [Suspect]
     Active Substance: CETIRIZINE HYDROCHLORIDE
     Indication: HYPERSENSITIVITY
     Dosage: 1 TABLET ONCE DAILY?LAST DOSE ADMIN: 18-FEB-2020
     Route: 048
     Dates: start: 20200217

REACTIONS (2)
  - Insomnia [Unknown]
  - Drug ineffective [Unknown]
